FAERS Safety Report 8675147 (Version 12)
Quarter: 2016Q1

REPORT INFORMATION
  Report Type: Spontaneous
  Country: US (occurrence: US)
  Receive Date: 20120720
  Receipt Date: 20160317
  Transmission Date: 20160526
  Serious: Yes (Life-Threatening, Hospitalization, Congenital Anomaly, Other)
  Sender: FDA-Public Use
  Company Number: US-PFIZER INC-2012173549

PATIENT
  Sex: Male
  Weight: 4 kg

DRUGS (7)
  1. FOLIC ACID. [Concomitant]
     Active Substance: FOLIC ACID
     Dosage: 1 MG, 1X/DAY
     Route: 064
     Dates: start: 20031117
  2. MULTIVITAMINS [Concomitant]
     Active Substance: VITAMINS
     Dosage: ONCE DAILY, UNK
     Route: 064
     Dates: start: 20031117
  3. PAXIL [Concomitant]
     Active Substance: PAROXETINE HYDROCHLORIDE
     Dosage: 25 MG, UNK
     Route: 064
  4. IRON [Concomitant]
     Active Substance: IRON
     Dosage: TWICE DAILY, UNK
     Route: 064
     Dates: start: 20040308
  5. ZOLOFT [Suspect]
     Active Substance: SERTRALINE HYDROCHLORIDE
     Indication: DEPRESSION
     Dosage: 50 MG, UNK
     Route: 064
     Dates: start: 20020719
  6. TYLENOL [Concomitant]
     Active Substance: ACETAMINOPHEN
     Indication: PAIN
     Dosage: 2 DF, EVERY 4 HRS
     Route: 064
     Dates: start: 20040130
  7. ZOLOFT [Suspect]
     Active Substance: SERTRALINE HYDROCHLORIDE
     Dosage: 100 MG, UNK
     Route: 064
     Dates: start: 20020919

REACTIONS (4)
  - Maternal exposure timing unspecified [Not Recovered/Not Resolved]
  - Atrial septal defect [Unknown]
  - Coarctation of the aorta [Unknown]
  - Heart disease congenital [Not Recovered/Not Resolved]

NARRATIVE: CASE EVENT DATE: 20040527
